FAERS Safety Report 8760059 (Version 1)
Quarter: 2012Q4

REPORT INFORMATION
  Report Type: 
  Country: GB (occurrence: GB)
  Receive Date: 20120829
  Receipt Date: 20120829
  Transmission Date: 20130627
  Serious: Yes (Other)
  Sender: FDA-Public Use
  Company Number: GB-TEVA-355095ISR

PATIENT
  Age: 37 Year
  Sex: Male
  Weight: 102.5 kg

DRUGS (3)
  1. AMITRIPTYLINE [Suspect]
     Dates: start: 20120425, end: 20120801
  2. CETIRIZINE [Concomitant]
     Dates: start: 20120703, end: 20120731
  3. SODIUM CROMOGLICATE [Concomitant]
     Dates: start: 20120703, end: 20120731

REACTIONS (3)
  - Atrioventricular block first degree [Recovered/Resolved]
  - Supraventricular extrasystoles [Recovered/Resolved]
  - Arrhythmia [Recovered/Resolved]
